FAERS Safety Report 8221715-3 (Version None)
Quarter: 2012Q1

REPORT INFORMATION
  Report Type: 
  Country: None (occurrence: None)
  Receive Date: 20120320
  Receipt Date: 20120315
  Transmission Date: 20120608
  Serious: Yes (Other)
  Sender: FDA-Public Use
  Company Number: US-PFIZER INC-2012069403

PATIENT
  Age: 70 Year
  Sex: Male

DRUGS (3)
  1. NORVASC [Suspect]
     Dosage: UNK
  2. HYDROCHLOROTHIAZIDE [Suspect]
     Dosage: UNK
  3. LABETALOL [Suspect]
     Dosage: UNK

REACTIONS (2)
  - BLOOD PRESSURE ABNORMAL [None]
  - DRUG INEFFECTIVE [None]
